FAERS Safety Report 4298723-0 (Version None)
Quarter: 2004Q1

REPORT INFORMATION
  Report Type: 
  Country: None (occurrence: None)
  Receive Date: 20040126
  Receipt Date: 20031111
  Transmission Date: 20041129
  Serious: No
  Sender: FDA-Public Use
  Company Number: USA031050966

PATIENT
  Age: 59 Year
  Sex: Male

DRUGS (2)
  1. STRATTERA [Suspect]
     Indication: ATTENTION DEFICIT/HYPERACTIVITY DISORDER
     Dosage: 80 MG/DAY
     Dates: start: 20031020, end: 20031027
  2. VIAGRA [Concomitant]

REACTIONS (2)
  - EJACULATION DISORDER [None]
  - SEXUAL DYSFUNCTION [None]
